FAERS Safety Report 14925405 (Version 2)
Quarter: 2018Q3

REPORT INFORMATION
  Report Type: Report from Study
  Country: None (occurrence: CO)
  Receive Date: 20180522
  Receipt Date: 20180720
  Transmission Date: 20181010
  Serious: Yes (Other)
  Sender: FDA-Public Use
  Company Number: CO-ABBVIE-18K-036-2363710-00

PATIENT
  Age: 60 Year
  Sex: Female

DRUGS (1)
  1. HUMIRA [Suspect]
     Active Substance: ADALIMUMAB
     Indication: RHEUMATOID ARTHRITIS
     Route: 058
     Dates: start: 20121207, end: 20180429

REACTIONS (4)
  - Foot deformity [Recovering/Resolving]
  - Urinary tract infection [Unknown]
  - Impaired healing [Unknown]
  - Wound complication [Unknown]

NARRATIVE: CASE EVENT DATE: 201712
